FAERS Safety Report 7724550-5 (Version None)
Quarter: 2011Q3

REPORT INFORMATION
  Report Type: 
  Country: None (occurrence: None)
  Receive Date: 20110901
  Receipt Date: 20110823
  Transmission Date: 20111222
  Serious: Yes (Other)
  Sender: FDA-Public Use
  Company Number: US-BAYER-201023947NA

PATIENT
  Age: 34 Year
  Sex: Female
  Weight: 63 kg

DRUGS (8)
  1. VITAMIN D [Concomitant]
  2. YAZ [Suspect]
     Indication: CONTRACEPTION
     Dosage: UNK
     Route: 048
     Dates: start: 20060901, end: 20090501
  3. MULTI-VITAMIN [Concomitant]
  4. TYLENOL-500 [Concomitant]
     Dosage: UNK UNK, PRN
  5. SULFA-TYPE MEDICATION [Concomitant]
     Route: 061
  6. IBUPROFEN [Concomitant]
  7. VITAMIN B [Concomitant]
  8. FOLIC ACID [Concomitant]

REACTIONS (7)
  - PANCREATITIS [None]
  - ANORECTAL DISORDER [None]
  - ABDOMINAL PAIN [None]
  - ABDOMINAL PAIN UPPER [None]
  - CHOLELITHIASIS [None]
  - IRRITABLE BOWEL SYNDROME [None]
  - DYSPEPSIA [None]
